FAERS Safety Report 7053494-X (Version None)
Quarter: 2010Q4

REPORT INFORMATION
  Report Type: 
  Country: None (occurrence: None)
  Receive Date: 20101020
  Receipt Date: 20101006
  Transmission Date: 20110411
  Serious: No
  Sender: FDA-Public Use
  Company Number: US-PFIZER INC-2007021708

PATIENT
  Sex: Female
  Weight: 114.29 kg

DRUGS (15)
  1. CHANTIX [Suspect]
     Indication: SMOKING CESSATION THERAPY
     Dosage: 0.5 MG, 1X/DAY
     Route: 048
     Dates: start: 20070316, end: 20070101
  2. CHANTIX [Suspect]
     Dosage: UNK
     Route: 048
  3. ALBUTEROL [Concomitant]
     Route: 055
  4. FLEXERIL [Concomitant]
  5. SYNTHROID [Concomitant]
     Dosage: UNK
  6. LASIX [Concomitant]
  7. TRICOR [Concomitant]
     Dosage: UNK
  8. MONTELUKAST [Concomitant]
     Dosage: UNK
  9. ADVAIR DISKUS 100/50 [Concomitant]
     Dosage: UNK
  10. COMBIVENT [Concomitant]
     Dosage: UNK
  11. TOPAMAX [Concomitant]
     Dosage: UNK
  12. SEROQUEL [Concomitant]
     Dosage: UNK
  13. KLONOPIN [Concomitant]
     Dosage: UNK
  14. CYMBALTA [Concomitant]
     Dosage: UNK
  15. ABILIFY [Concomitant]
     Dosage: UNK

REACTIONS (5)
  - BLOOD CHOLESTEROL INCREASED [None]
  - BLOOD GLUCOSE INCREASED [None]
  - HYPOVITAMINOSIS [None]
  - PRURITUS [None]
  - STRESS [None]
